FAERS Safety Report 6903546-7 (Version None)
Quarter: 2010Q3

REPORT INFORMATION
  Report Type: 
  Country: None (occurrence: None)
  Receive Date: 20100803
  Receipt Date: 20081022
  Transmission Date: 20110219
  Serious: Yes (Other)
  Sender: FDA-Public Use
  Company Number: US-PFIZER INC-2008089722

PATIENT
  Sex: Male
  Weight: 90.909 kg

DRUGS (1)
  1. LYRICA [Suspect]
     Indication: BACK PAIN
     Dates: start: 20080929, end: 20081017

REACTIONS (6)
  - ABNORMAL BEHAVIOUR [None]
  - AGGRESSION [None]
  - DECREASED APPETITE [None]
  - DRUG INEFFECTIVE FOR UNAPPROVED INDICATION [None]
  - IRRITABILITY [None]
  - SUICIDAL IDEATION [None]
